FAERS Safety Report 9566194 (Version 1)
Quarter: 2013Q3

REPORT INFORMATION
  Report Type: Spontaneous
  Country: US (occurrence: US)
  Receive Date: 20130930
  Receipt Date: 20130930
  Transmission Date: 20140515
  Serious: No
  Sender: FDA-Public Use
  Company Number: US-ASTRAZENECA-2013SE64072

PATIENT
  Age: 66 Year
  Sex: Female
  Weight: 81.6 kg

DRUGS (14)
  1. BRILINTA [Suspect]
     Indication: STENT PLACEMENT
     Route: 048
  2. ASA [Suspect]
     Route: 065
  3. CARVEDILOL [Concomitant]
     Indication: BLOOD PRESSURE
  4. QUINIPRIL [Concomitant]
     Indication: BLOOD PRESSURE
  5. LEVOTHYROXINE [Concomitant]
     Indication: THYROID DISORDER
     Dosage: 50MCG DAILY
  6. POT CL MICRO [Concomitant]
  7. JANUVIA [Concomitant]
     Indication: DIABETES MELLITUS
  8. GLIMEPIRIDE [Concomitant]
     Indication: DIABETES MELLITUS
  9. COQ10 [Concomitant]
  10. VIT D3 [Concomitant]
  11. FAMOTIDINE [Concomitant]
  12. LIVALO [Concomitant]
     Indication: BLOOD CHOLESTEROL ABNORMAL
  13. BUMETANIDE [Concomitant]
  14. CODEINE [Concomitant]

REACTIONS (4)
  - Heat exhaustion [Recovered/Resolved]
  - Dehydration [Recovered/Resolved]
  - Malaise [Unknown]
  - Intentional drug misuse [Unknown]
